FAERS Safety Report 15098947 (Version 1)
Quarter: 2018Q3

REPORT INFORMATION
  Report Type: Spontaneous
  Country: CN (occurrence: CN)
  Receive Date: 20180702
  Receipt Date: 20180702
  Transmission Date: 20181010
  Serious: Yes (Other)
  Sender: FDA-Public Use
  Company Number: CN-PFIZER INC-2018264923

PATIENT
  Age: 34 Year
  Sex: Female
  Weight: 64 kg

DRUGS (3)
  1. HERCEPTIN [Suspect]
     Active Substance: TRASTUZUMAB
     Indication: BREAST CANCER
     Dosage: 500 MG, ONCE PER 20 DAYS FOR 6 TREATMENT COURSE
     Route: 041
     Dates: start: 20171221, end: 20180406
  2. TAXOTERE [Suspect]
     Active Substance: DOCETAXEL
     Indication: BREAST CANCER
     Dosage: 120 MG, ONCE PER 20 DAYS FOR 6 TREATMENT COURSE
     Route: 041
     Dates: start: 20171221, end: 20180406
  3. PHARMORUBICIN [Suspect]
     Active Substance: EPIRUBICIN
     Indication: BREAST CANCER
     Dosage: 145 MG, ONCE PER 20 DAYS FOR 6 TREATMENT COURSE
     Route: 041
     Dates: start: 20171221, end: 20180406

REACTIONS (7)
  - Neutrophil count decreased [Recovering/Resolving]
  - Blood pressure decreased [Recovering/Resolving]
  - Tachycardia [Recovering/Resolving]
  - Bone marrow failure [Recovering/Resolving]
  - Hyperpyrexia [Recovering/Resolving]
  - White blood cell count decreased [Recovering/Resolving]
  - Loss of consciousness [Recovering/Resolving]

NARRATIVE: CASE EVENT DATE: 20180412
